FAERS Safety Report 8066398-0 (Version None)
Quarter: 2012Q1

REPORT INFORMATION
  Report Type: 
  Country: None (occurrence: None)
  Receive Date: 20120124
  Receipt Date: 20120124
  Transmission Date: 20120608
  Serious: Yes (Other)
  Sender: FDA-Public Use
  Company Number: None

PATIENT
  Sex: Female

DRUGS (1)
  1. REBIF [Suspect]
     Indication: MULTIPLE SCLEROSIS
     Dosage: 44MCG -ONE SYRINGE-
     Route: 058
     Dates: start: 20111212, end: 20120105

REACTIONS (2)
  - ERYTHEMA [None]
  - PRURITUS GENERALISED [None]
